FAERS Safety Report 5438465-9 (Version None)
Quarter: 2007Q3

REPORT INFORMATION
  Report Type: 
  Country: None (occurrence: None)
  Receive Date: 20070831
  Receipt Date: 20070822
  Transmission Date: 20080115
  Serious: Yes (Hospitalization)
  Sender: FDA-Public Use
  Company Number: US-ELI_LILLY_AND_COMPANY-US200708005184

PATIENT
  Age: 69 Year
  Sex: Male

DRUGS (11)
  1. BYETTA [Suspect]
     Indication: TYPE 2 DIABETES MELLITUS
     Dosage: 5 UG, 2/D
     Route: 058
     Dates: start: 20070701
  2. LIPITOR [Concomitant]
     Indication: BLOOD CHOLESTEROL
     Dosage: 20 MG, DAILY (1/D)
     Route: 048
  3. PROTONIX [Concomitant]
     Indication: ULCER HAEMORRHAGE
     Dosage: 40 MG, DAILY (1/D)
     Route: 048
  4. GLIPIZIDE [Concomitant]
     Indication: DIABETES MELLITUS
     Dosage: 20 MG, DAILY (1/D)
     Route: 048
  5. TRICOR [Concomitant]
     Indication: BLOOD CHOLESTEROL
     Dosage: 145 MG, DAILY (1/D)
     Route: 048
  6. TOPROL-XL [Concomitant]
     Indication: BLOOD PRESSURE
     Dosage: 50 MG, DAILY (1/D)
     Route: 048
  7. MINOXIDIL [Concomitant]
     Dosage: 5 MG, DAILY (1/D)
     Route: 048
  8. LANTUS [Concomitant]
     Indication: DIABETES MELLITUS
     Dosage: 20 U, EACH EVENING
     Route: 058
     Dates: end: 20070701
  9. PLAVIX [Concomitant]
     Indication: PROPHYLAXIS
     Dosage: 75 MG, DAILY (1/D)
     Route: 048
  10. ASPIRIN [Concomitant]
     Indication: ANTICOAGULANT THERAPY
     Dosage: 81 MG, DAILY (1/D)
     Route: 048
  11. FUROSEMIDE [Concomitant]
     Indication: RENAL DISORDER
     Dosage: 40 MG, 2/D
     Route: 048

REACTIONS (3)
  - ARTERIAL OCCLUSIVE DISEASE [None]
  - MOBILITY DECREASED [None]
  - PAIN IN EXTREMITY [None]
